FAERS Safety Report 6340751-5 (Version None)
Quarter: 2009Q3

REPORT INFORMATION
  Report Type: 
  Country: None (occurrence: None)
  Receive Date: 20090904
  Receipt Date: 20090902
  Transmission Date: 20100115
  Serious: Yes (Life-Threatening)
  Sender: FDA-Public Use
  Company Number: CH-BRISTOL-MYERS SQUIBB COMPANY-14763304

PATIENT
  Age: 29 Year
  Sex: Male

DRUGS (3)
  1. CISPLATIN [Suspect]
     Indication: TESTIS CANCER
     Dosage: CYCLE 1: 27-JUL-2009 TO 16-AUG-2009.  CYCLE 2 FROM 17-AUG-2009.
     Dates: start: 20090727
  2. BLEOMYCIN SULFATE [Suspect]
     Indication: TESTIS CANCER
     Dosage: CYCLE 1:27JUL09 - 16AUG09 AND CYCLE 2:17AUG09. LAST ADMIN:31AUG09.
     Dates: start: 20090727, end: 20090831
  3. ETOPOPHOS PRESERVATIVE FREE [Suspect]
     Indication: TESTIS CANCER
     Dosage: CYCLE 1:27JUL09-16AUG09 AND CYCLE 2:17AUG09.
     Dates: start: 20090727

REACTIONS (1)
  - INTRACRANIAL VENOUS SINUS THROMBOSIS [None]
